FAERS Safety Report 7927912 (Version 5)
Quarter: 2013Q3

REPORT INFORMATION
  Report Type: Report from Study
  Country: US (occurrence: US)
  Receive Date: 20110503
  Receipt Date: 20130730
  Transmission Date: 20140515
  Serious: Yes (Hospitalization)
  Sender: FDA-Public Use
  Company Number: US-BRISTOL-MYERS SQUIBB COMPANY-15425432

PATIENT
  Age: 47 Year
  Sex: Male

DRUGS (19)
  1. IPILIMUMAB [Suspect]
     Indication: MALIGNANT MELANOMA
     Dosage: NO. OF COURSES=4; 25FEB2011(253MG): RECEIVED 1ST DOSE OF RE-INDUCTION,LAST INDUCTION ON 27JUL10
     Route: 042
     Dates: start: 20100525
  2. VITAMIN D3 [Concomitant]
     Dosage: 1DF=2000 UNITS,TABS.
     Route: 048
  3. DEXAMETHASONE [Concomitant]
     Dosage: ALSO TAKEN 6MG,P.O.QHS.
     Route: 048
  4. LEVETIRACETAM [Concomitant]
     Dosage: TABLET
     Route: 048
  5. FOLIC ACID [Concomitant]
     Dosage: MORNING
     Route: 048
  6. VITAMIN B COMPLEX [Concomitant]
     Dosage: 1DF=1 TAB.
     Route: 048
  7. CITALOPRAM [Concomitant]
     Dosage: 30 TABLETS
     Route: 048
  8. BETAMETHASONE DIPROPIONATE [Concomitant]
     Dosage: 0.05% OINTMENT
     Route: 061
  9. DESOWEN [Concomitant]
     Dosage: CREAM FOR 2 WEEKS.
     Route: 061
  10. DOVONEX [Concomitant]
     Dosage: CREAM 120GRAMS.
     Route: 061
  11. FERROUS GLUCONATE [Concomitant]
     Dosage: TABLET,324 MG PO DAILY
     Route: 048
  12. OXYCODONE [Concomitant]
     Indication: PAIN
     Dosage: EVERY 4 HOURS,80 TABLET
     Route: 048
  13. PRILOSEC [Concomitant]
     Dosage: CAPSULE
     Route: 048
  14. VIMPAT [Concomitant]
     Dosage: 50MG TABLET,60TABS
     Route: 048
  15. ACETAMINOPHEN [Concomitant]
  16. DILAUDID [Concomitant]
     Indication: PAIN
     Dosage: 1DF=2-4MG EVENRY 3 HRS AS NEEDED
  17. FENTANYL PATCH [Concomitant]
  18. KEPPRA [Concomitant]
  19. LIDODERM PATCH [Concomitant]

REACTIONS (7)
  - Central nervous system necrosis [Recovered/Resolved with Sequelae]
  - Convulsion [Recovered/Resolved with Sequelae]
  - Pyrexia [Recovered/Resolved with Sequelae]
  - Confusional state [Recovered/Resolved with Sequelae]
  - Back pain [Recovered/Resolved with Sequelae]
  - Mouth haemorrhage [Recovered/Resolved]
  - Melaena [Recovered/Resolved]
